FAERS Safety Report 4335494-3 (Version None)
Quarter: 2004Q1

REPORT INFORMATION
  Report Type: 
  Country: None (occurrence: None)
  Receive Date: 20040330
  Receipt Date: 20040107
  Transmission Date: 20041129
  Serious: No
  Sender: FDA-Public Use
  Company Number: 27456

PATIENT
  Sex: Female

DRUGS (2)
  1. TRAVATAN [Suspect]
  2. XALATAN SOLUTION [Concomitant]

REACTIONS (2)
  - EYE PAIN [None]
  - VISION BLURRED [None]
